FAERS Safety Report 8616286-3 (Version None)
Quarter: 2012Q3

REPORT INFORMATION
  Report Type: 
  Country: None (occurrence: None)
  Receive Date: 20120815
  Receipt Date: 20120815
  Transmission Date: 20120928
  Serious: Yes (Hospitalization)
  Sender: FDA-Public Use
  Company Number: None

PATIENT
  Sex: Male
  Weight: 86.1834 kg

DRUGS (1)
  1. PROPECIA [Suspect]
     Indication: ANDROGENETIC ALOPECIA
     Dosage: 1 TABLET DAILY PO
     Route: 048
     Dates: start: 20000801, end: 20040501

REACTIONS (7)
  - ALCOHOL USE [None]
  - LIBIDO DECREASED [None]
  - DEPRESSION [None]
  - ANXIETY [None]
  - COGNITIVE DISORDER [None]
  - LOSS OF LIBIDO [None]
  - POLLAKIURIA [None]
